FAERS Safety Report 5208054-X (Version None)
Quarter: 2007Q1

REPORT INFORMATION
  Report Type: 
  Country: None (occurrence: None)
  Receive Date: 20070115
  Receipt Date: 20070109
  Transmission Date: 20070707
  Serious: Yes (Hospitalization)
  Sender: FDA-Public Use
  Company Number: IT-ROCHE-477412

PATIENT
  Age: 55 Year
  Sex: Male

DRUGS (5)
  1. DACLIZUMAB [Suspect]
     Route: 065
     Dates: start: 20061101, end: 20061101
  2. DACLIZUMAB [Suspect]
     Route: 065
     Dates: start: 20061108
  3. TACROLIMUS [Suspect]
     Route: 048
     Dates: start: 20061101, end: 20061108
  4. TACROLIMUS [Suspect]
     Route: 048
     Dates: start: 20061109, end: 20061109
  5. TACROLIMUS [Suspect]
     Route: 048
     Dates: start: 20061113, end: 20061202

REACTIONS (1)
  - ENCEPHALOPATHY [None]
